FAERS Safety Report 20499947 (Version 1)
Quarter: 2022Q1

REPORT INFORMATION
  Report Type: Spontaneous
  Country: US (occurrence: US)
  Receive Date: 20220222
  Receipt Date: 20220222
  Transmission Date: 20220424
  Serious: No
  Sender: FDA-Public Use
  Company Number: US-UCBSA-2021044017

PATIENT
  Age: 2 Year
  Sex: Male

DRUGS (9)
  1. LEVETIRACETAM [Suspect]
     Active Substance: LEVETIRACETAM
     Indication: Status epilepticus
     Dosage: UNK
  2. LEVETIRACETAM [Suspect]
     Active Substance: LEVETIRACETAM
     Indication: Off label use
  3. PHENOBARBITAL [Concomitant]
     Active Substance: PHENOBARBITAL
     Indication: Status epilepticus
     Dosage: UNK
  4. GABAPENTIN [Concomitant]
     Active Substance: GABAPENTIN
     Indication: Status epilepticus
     Dosage: UNK
  5. PRIVIGEN [Concomitant]
     Active Substance: HUMAN IMMUNOGLOBULIN G
     Indication: Encephalitis autoimmune
     Dosage: UNK
  6. DEXAMETHASONE [Concomitant]
     Active Substance: DEXAMETHASONE
     Indication: Encephalitis autoimmune
     Dosage: UNK
  7. RITUXIMAB [Concomitant]
     Active Substance: RITUXIMAB
     Indication: Encephalitis autoimmune
     Dosage: UNK
  8. CYCLOPHOSPHAMIDE [Concomitant]
     Active Substance: CYCLOPHOSPHAMIDE
     Indication: Encephalitis autoimmune
     Dosage: UNK
  9. BORTEZOMIB [Concomitant]
     Active Substance: BORTEZOMIB
     Indication: Encephalitis autoimmune
     Dosage: UNK

REACTIONS (1)
  - No adverse event [Unknown]
